FAERS Safety Report 11419955 (Version 2)
Quarter: 2015Q4

REPORT INFORMATION
  Report Type: Report from Study
  Country: BR (occurrence: BR)
  Receive Date: 20150826
  Receipt Date: 20151007
  Transmission Date: 20160304
  Serious: Yes (Hospitalization, Other)
  Sender: FDA-Public Use
  Company Number: PHHY2015BR102602

PATIENT
  Sex: Female

DRUGS (4)
  1. SANDOSTATIN LAR DEPOT [Suspect]
     Active Substance: OCTREOTIDE ACETATE
     Indication: ACROMEGALY
     Dosage: 1 DF, QMO
     Route: 065
  2. CABERGOLINE. [Suspect]
     Active Substance: CABERGOLINE
     Indication: PRODUCT USED FOR UNKNOWN INDICATION
     Dosage: 2 DF, QW
     Route: 065
  3. SANDOSTATIN LAR DEPOT [Suspect]
     Active Substance: OCTREOTIDE ACETATE
     Indication: PITUITARY TUMOUR
  4. PURAN [Suspect]
     Active Substance: LEVOTHYROXINE SODIUM
     Indication: PRODUCT USED FOR UNKNOWN INDICATION
     Route: 065

REACTIONS (18)
  - Joint injury [Unknown]
  - Mass [Recovering/Resolving]
  - Headache [Unknown]
  - Blood growth hormone increased [Unknown]
  - Glaucoma [Unknown]
  - Arthralgia [Unknown]
  - Tendonitis [Unknown]
  - Bacterial infection [Unknown]
  - Visual acuity reduced [Unknown]
  - Bone loss [Unknown]
  - Weight increased [Unknown]
  - Musculoskeletal pain [Unknown]
  - Depression [Unknown]
  - Gait disturbance [Unknown]
  - No therapeutic response [Unknown]
  - Blindness unilateral [Unknown]
  - Laziness [Unknown]
  - Pain in extremity [Unknown]
